FAERS Safety Report 8521492-2 (Version None)
Quarter: 2012Q3

REPORT INFORMATION
  Report Type: 
  Country: None (occurrence: None)
  Receive Date: 20120719
  Receipt Date: 20120710
  Transmission Date: 20120928
  Serious: Yes (Other)
  Sender: FDA-Public Use
  Company Number: AR-ASTRAZENECA-2012SE47922

PATIENT
  Age: 54 Year
  Sex: Female

DRUGS (5)
  1. PAROXETINE HCL [Interacting]
     Indication: DEPRESSION
     Route: 048
     Dates: start: 20110101
  2. ARIMIDEX [Suspect]
     Indication: BREAST CANCER
     Route: 048
     Dates: start: 20111101
  3. ARIPIPRAZOLE [Interacting]
     Indication: MENTAL DISORDER
     Route: 048
     Dates: start: 20100101
  4. TAMOXIFEN CITRATE [Interacting]
     Route: 048
  5. CLONAZEPAM [Interacting]
     Indication: ANXIOLYTIC THERAPY
     Route: 065
     Dates: start: 20110101

REACTIONS (3)
  - DRUG INTERACTION [None]
  - METASTASES TO BONE [None]
  - NON-CARDIAC CHEST PAIN [None]
